FAERS Safety Report 10084735 (Version 1)
Quarter: 2014Q2

REPORT INFORMATION
  Report Type: Spontaneous
  Country: IT (occurrence: IT)
  Receive Date: 20140417
  Receipt Date: 20140417
  Transmission Date: 20141212
  Serious: Yes (Life-Threatening, Hospitalization)
  Sender: FDA-Public Use
  Company Number: IT-VIIV HEALTHCARE LIMITED-B0986363A

PATIENT
  Age: 43 Year
  Sex: Male

DRUGS (2)
  1. KIVEXA [Suspect]
     Indication: ANTIRETROVIRAL THERAPY
     Dosage: 1UNIT PER DAY
     Route: 048
     Dates: start: 20130419, end: 20140401
  2. VIRAMUNE [Suspect]
     Indication: ANTIRETROVIRAL THERAPY
     Dosage: 400MG PER DAY
     Route: 048
     Dates: start: 20130419, end: 20140401

REACTIONS (5)
  - Acute myocardial infarction [Recovered/Resolved with Sequelae]
  - Ventricular fibrillation [Recovered/Resolved with Sequelae]
  - Chest pain [Recovered/Resolved with Sequelae]
  - Coronary artery stenosis [Unknown]
  - Left ventricular hypertrophy [Unknown]
